FAERS Safety Report 8303051 (Version 3)
Quarter: 2013Q1

REPORT INFORMATION
  Report Type: Spontaneous
  Country: US (occurrence: US)
  Receive Date: 20111220
  Receipt Date: 20130207
  Transmission Date: 20140127
  Serious: Yes (Death, Hospitalization, Other)
  Sender: FDA-Public Use
  Company Number: US-BAYER-2011-118645

PATIENT
  Age: 25 Year
  Sex: Female
  Weight: 92.97 kg

DRUGS (4)
  1. YASMIN [Suspect]
     Indication: PREMENSTRUAL SYNDROME
     Dosage: UNK
     Dates: start: 200506, end: 20070613
  2. YASMIN [Suspect]
     Indication: MENORRHAGIA
  3. BENADRYL [DIPHENHYDRAMINE HYDROCHLORIDE] [Concomitant]
     Dosage: 25 MG, ONE CAPSULE EVERY 4-6 HOURS AS NEEDED
  4. LEVSIN SL [Concomitant]
     Dosage: 0.125 MG, Q4HR1-2 TABLETS AS NEEDED
     Route: 060

REACTIONS (10)
  - Cholecystitis [None]
  - Cholecystitis chronic [None]
  - Pulmonary embolism [Fatal]
  - Intracardiac thrombus [Fatal]
  - Abdominal pain upper [None]
  - Loss of consciousness [Fatal]
  - Emotional distress [None]
  - Mental disorder [None]
  - Cardio-respiratory arrest [Fatal]
  - Off label use [None]
